FAERS Safety Report 5960449-2 (Version None)
Quarter: 2008Q4

REPORT INFORMATION
  Report Type: 
  Country: None (occurrence: None)
  Receive Date: 20081120
  Receipt Date: 20081114
  Transmission Date: 20090506
  Serious: Yes (Hospitalization)
  Sender: FDA-Public Use
  Company Number: CA-B.I. PHARMACEUTICALS,INC./RIDGEFIELD-2007-DE-03130GD

PATIENT

DRUGS (3)
  1. DIPYRIDAMOL + ACETYSALICYLIC ACID [Suspect]
     Indication: CEREBRAL ISCHAEMIA
     Dosage: 25 MG ASA/200 MG DIPYRIDAMOLE
     Route: 048
  2. DIPYRIDAMOL + ACETYSALICYLIC ACID [Suspect]
     Dosage: 50 MG ASA/400 MG DIPYRIDAMOLE
     Route: 048
  3. ACETYLSALICYLIC ACID SRT [Suspect]
     Indication: CEREBRAL ISCHAEMIA
     Dosage: 81MG

REACTIONS (5)
  - ARTERY DISSECTION [None]
  - CEREBROVASCULAR ACCIDENT [None]
  - COUGH [None]
  - DISEASE RECURRENCE [None]
  - DRUG INEFFECTIVE [None]
